FAERS Safety Report 6056188-2 (Version None)
Quarter: 2009Q1

REPORT INFORMATION
  Report Type: 
  Country: None (occurrence: None)
  Receive Date: 20090129
  Receipt Date: 20090107
  Transmission Date: 20090719
  Serious: Yes (Hospitalization)
  Sender: FDA-Public Use
  Company Number: JP-BAYER-JP-2006-007637

PATIENT
  Age: 49 Year
  Sex: Female
  Weight: 57 kg

DRUGS (7)
  1. BETAFERON [Suspect]
     Indication: MULTIPLE SCLEROSIS
     Dosage: UNIT DOSE: 8 MIU
     Route: 058
     Dates: start: 20010401, end: 20060206
  2. BASEN [Concomitant]
     Indication: DIABETES MELLITUS
     Dosage: UNIT DOSE: 0.2 MG
     Route: 048
  3. LAC B [Concomitant]
     Indication: DIARRHOEA
     Dosage: UNIT DOSE: 3 G
     Route: 048
  4. JUVELA NICOTINATE [Concomitant]
     Indication: MULTIPLE SCLEROSIS
     Dosage: UNIT DOSE: 200 MG
     Route: 048
     Dates: start: 20010418, end: 20060202
  5. MECOBALAMIN [Concomitant]
     Indication: MULTIPLE SCLEROSIS
     Dosage: UNIT DOSE: 0.5 MG
     Route: 048
     Dates: start: 20010418, end: 20060202
  6. TERNELIN [Concomitant]
     Indication: MULTIPLE SCLEROSIS
     Dosage: UNIT DOSE: 3 MG
     Route: 048
     Dates: start: 20000815, end: 20060202
  7. LIORESAL ^NOVARTIS^ [Concomitant]
     Indication: MULTIPLE SCLEROSIS
     Dosage: UNIT DOSE: 15 MG
     Route: 048
     Dates: start: 20030302, end: 20060202

REACTIONS (4)
  - LYMPHOCYTE COUNT DECREASED [None]
  - NEUTROPHIL COUNT DECREASED [None]
  - SARCOIDOSIS [None]
  - WHITE BLOOD CELL COUNT DECREASED [None]
